FAERS Safety Report 4323536-0 (Version None)
Quarter: 2004Q1

REPORT INFORMATION
  Report Type: 
  Country: None (occurrence: None)
  Receive Date: 20040322
  Receipt Date: 20040209
  Transmission Date: 20041129
  Serious: Yes (Other)
  Sender: FDA-Public Use
  Company Number: 20040200125

PATIENT
  Age: 85 Year
  Sex: Female

DRUGS (10)
  1. BREVIBLOC [Suspect]
     Indication: PROPHYLAXIS
     Dosage: 20 MG DAILY IV
     Route: 042
     Dates: start: 20031224, end: 20031224
  2. BREVIBLOC [Suspect]
     Indication: PROPHYLAXIS
     Dosage: 20 MG DAILY IV
     Route: 042
     Dates: start: 20031224, end: 20031224
  3. VERAPAMIL HCL [Suspect]
     Indication: PROPHYLAXIS
     Dosage: 2 MG DAILY
  4. SEVORANE (SEVOFLURANE) [Concomitant]
  5. OXYGEN [Concomitant]
  6. THIAMYLAL SODIUM [Concomitant]
  7. FENTANEST (FENTANYL CITRATE) [Concomitant]
  8. VECURONIUM BROMIDE [Concomitant]
  9. NICARDIPINE HCL [Concomitant]
  10. ACETATED RINGER'S [Concomitant]

REACTIONS (4)
  - ATRIOVENTRICULAR BLOCK [None]
  - CARDIAC ARREST [None]
  - HEART RATE INCREASED [None]
  - SUPRAVENTRICULAR EXTRASYSTOLES [None]
